FAERS Safety Report 8573797-7 (Version None)
Quarter: 2012Q3

REPORT INFORMATION
  Report Type: 
  Country: None (occurrence: None)
  Receive Date: 20120806
  Receipt Date: 20120723
  Transmission Date: 20120928
  Serious: No
  Sender: FDA-Public Use
  Company Number: US-ASTRAZENECA-2012SE51727

PATIENT
  Age: 62 Year
  Sex: Female
  Weight: 59 kg

DRUGS (4)
  1. NEXIUM [Suspect]
     Indication: GASTROOESOPHAGEAL REFLUX DISEASE
     Route: 048
     Dates: start: 20070101
  2. NEXIUM [Suspect]
     Route: 048
     Dates: start: 20120701
  3. NEXIUM [Suspect]
     Route: 048
     Dates: start: 20100101
  4. NEXIUM [Suspect]
     Dosage: TOTAL DAILY DOSAGE 40MG DAILY AND INCREASE TO TWO TIMES A DAY AS REQUIED
     Route: 048

REACTIONS (5)
  - DRUG INEFFECTIVE [None]
  - GASTROOESOPHAGEAL REFLUX DISEASE [None]
  - INTENTIONAL DRUG MISUSE [None]
  - OSTEOPOROSIS [None]
  - IRRITABLE BOWEL SYNDROME [None]
